FAERS Safety Report 10616837 (Version 1)
Quarter: 2014Q4

REPORT INFORMATION
  Report Type: Spontaneous
  Country: ES (occurrence: ES)
  Receive Date: 20141201
  Receipt Date: 20141201
  Transmission Date: 20150529
  Serious: Yes (Other)
  Sender: FDA-Public Use
  Company Number: ES-TEVA-518155ISR

PATIENT
  Sex: Male

DRUGS (2)
  1. ACTIQ [Suspect]
     Active Substance: FENTANYL CITRATE
     Indication: PRODUCT USED FOR UNKNOWN INDICATION
     Dosage: 1600 MICROGRAM DAILY;
     Dates: start: 2014
  2. ACTIQ [Suspect]
     Active Substance: FENTANYL CITRATE
     Dosage: DIFFERENT DOSES
     Dates: start: 2009, end: 2013

REACTIONS (3)
  - Toxic skin eruption [Unknown]
  - Product taste abnormal [Unknown]
  - Product physical issue [Unknown]

NARRATIVE: CASE EVENT DATE: 201404
